FAERS Safety Report 9286264 (Version 1)
Quarter: 2013Q2

REPORT INFORMATION
  Report Type: Spontaneous
  Country: US (occurrence: None)
  Receive Date: 20130503
  Receipt Date: 20130503
  Transmission Date: 20140414
  Serious: Yes (Hospitalization)
  Sender: FDA-Public Use
  Company Number: USA/USA/13/0029309

PATIENT
  Age: 39 Year
  Sex: Female

DRUGS (2)
  1. ZIPRASIDONE [Suspect]
     Indication: PRODUCT USED FOR UNKNOWN INDICATION
     Dosage: 2 IN 1 DE
  2. CO-TRIMOXAZOLE(CO-TRIMOXAZOLE) [Concomitant]

REACTIONS (4)
  - Clostridium difficile colitis [None]
  - Neuroleptic malignant syndrome [None]
  - Rhabdomyolysis [None]
  - Renal failure acute [None]
